FAERS Safety Report 21372144 (Version 2)
Quarter: 2022Q3

REPORT INFORMATION
  Report Type: Spontaneous
  Country: ZA (occurrence: ZA)
  Receive Date: 20220923
  Receipt Date: 20220929
  Transmission Date: 20221026
  Serious: Yes (Hospitalization, Other)
  Sender: FDA-Public Use
  Company Number: ZA-ALLERGAN-2230981US

PATIENT
  Sex: Female

DRUGS (2)
  1. BOTOX [Suspect]
     Active Substance: ONABOTULINUMTOXINA
     Indication: Product used for unknown indication
     Dosage: UNK, SINGLE
     Dates: start: 20220812, end: 20220812
  2. BOTOX [Suspect]
     Active Substance: ONABOTULINUMTOXINA
     Dosage: UNK, SINGLE
     Dates: start: 2018, end: 2018

REACTIONS (26)
  - Botulism [Unknown]
  - Feeling abnormal [Unknown]
  - Palpitations [Unknown]
  - Ear discomfort [Unknown]
  - Urinary tract disorder [Unknown]
  - Emotional disorder [Unknown]
  - Paralysis [Unknown]
  - Insomnia [Unknown]
  - Ear pain [Unknown]
  - Hyperacusis [Unknown]
  - Ear congestion [Unknown]
  - Dizziness [Unknown]
  - Headache [Unknown]
  - Weight decreased [Unknown]
  - Constipation [Unknown]
  - Nasal congestion [Unknown]
  - Dyspnoea [Unknown]
  - Speech disorder [Unknown]
  - Hypoacusis [Unknown]
  - Asthenia [Unknown]
  - Muscular weakness [Unknown]
  - Dysphagia [Unknown]
  - Fatigue [Unknown]
  - Vision blurred [Unknown]
  - Dry mouth [Unknown]
  - Tinnitus [Unknown]
